FAERS Safety Report 16245197 (Version 2)
Quarter: 2019Q2

REPORT INFORMATION
  Report Type: Spontaneous
  Country: IN (occurrence: IN)
  Receive Date: 20190426
  Receipt Date: 20190426
  Transmission Date: 20190711
  Serious: Yes (Hospitalization)
  Sender: FDA-Public Use
  Company Number: PHHY2019IN093039

PATIENT
  Age: 62 Year
  Sex: Male

DRUGS (9)
  1. HYDROCHLOROTHIAZIDE. [Concomitant]
     Active Substance: HYDROCHLOROTHIAZIDE
     Indication: HYPERTENSION
     Dosage: UNK
     Route: 005
  2. LEVODOPA [Suspect]
     Active Substance: LEVODOPA
     Indication: PARKINSON^S DISEASE
     Dosage: UNK
     Route: 065
  3. PRAMIPEXOLE. [Suspect]
     Active Substance: PRAMIPEXOLE
     Indication: PARKINSON^S DISEASE
     Dosage: UNK
     Route: 065
  4. TELMISARTAN. [Concomitant]
     Active Substance: TELMISARTAN
     Indication: HYPERTENSION
     Dosage: UNK
     Route: 065
  5. AMANTADINE. [Suspect]
     Active Substance: AMANTADINE HYDROCHLORIDE
     Indication: PARKINSON^S DISEASE
     Dosage: UNK
     Route: 065
  6. RASAGILINE. [Suspect]
     Active Substance: RASAGILINE
     Indication: PARKINSON^S DISEASE
     Dosage: UNK
     Route: 065
  7. CARBIDOPA. [Suspect]
     Active Substance: CARBIDOPA
     Indication: PARKINSON^S DISEASE
     Dosage: UNK
     Route: 065
  8. ENTACAPONE. [Suspect]
     Active Substance: ENTACAPONE
     Indication: PARKINSON^S DISEASE
     Dosage: UNK
     Route: 065
  9. BROMOCRIPTINE [Concomitant]
     Active Substance: BROMOCRIPTINE
     Indication: PARKINSON^S DISEASE
     Dosage: 17.5 MG, UNK (FOUR DIVIDED DOSES)
     Route: 065

REACTIONS (16)
  - Generalised tonic-clonic seizure [Unknown]
  - Mental status changes [Unknown]
  - Hyperthermia [Unknown]
  - Hypoxia [Recovered/Resolved]
  - Thrombocytopenia [Recovering/Resolving]
  - Blood creatine phosphokinase increased [Recovering/Resolving]
  - Depressed level of consciousness [Unknown]
  - Renal impairment [Recovering/Resolving]
  - Blood pressure fluctuation [Unknown]
  - Autonomic nervous system imbalance [Unknown]
  - Neuroleptic malignant syndrome [Unknown]
  - Body temperature increased [Unknown]
  - Muscle rigidity [Recovering/Resolving]
  - Hyponatraemia [Recovering/Resolving]
  - Respiratory failure [Recovered/Resolved]
  - Encephalopathy [Unknown]
